FAERS Safety Report 8901948 (Version 1)
Quarter: 2012Q4

REPORT INFORMATION
  Report Type: Spontaneous
  Country: US (occurrence: None)
  Receive Date: 20121109
  Receipt Date: 20121109
  Transmission Date: 20130627
  Serious: Yes (Other)
  Sender: FDA-Public Use
  Company Number: None

PATIENT
  Age: 80 Year
  Sex: Male
  Weight: 68.04 kg

DRUGS (3)
  1. ALENDRONATE [Suspect]
     Indication: BONE DENSITY INCREASED
     Dosage: 35 mg 1 x week oral
     Route: 048
     Dates: start: 20120901, end: 20121001
  2. CALCIUM 600 + D [Concomitant]
  3. CALTRATE 600-D [Concomitant]

REACTIONS (1)
  - Arthralgia [None]
